FAERS Safety Report 8429982-8 (Version None)
Quarter: 2012Q2

REPORT INFORMATION
  Report Type: 
  Country: None (occurrence: None)
  Receive Date: 20120612
  Receipt Date: 20120604
  Transmission Date: 20120825
  Serious: No
  Sender: FDA-Public Use
  Company Number: US-B.I. PHARMACEUTICALS,INC./RIDGEFIELD-2012-BP-12925BP

PATIENT
  Age: 74 Year
  Sex: Female

DRUGS (6)
  1. VERAPAMIL [Concomitant]
     Indication: ATRIAL FIBRILLATION
  2. PRADAXA [Suspect]
     Indication: ATRIAL FIBRILLATION
     Dosage: 300 MG
     Route: 048
     Dates: start: 20110601
  3. METFORMIN HCL [Concomitant]
     Indication: DIABETES MELLITUS
  4. DIOVAN HCT [Concomitant]
     Indication: HYPERTENSION
  5. JANUVIA [Concomitant]
     Indication: DIABETES MELLITUS
  6. ROPINIROLE [Concomitant]
     Indication: RESTLESS LEGS SYNDROME

REACTIONS (1)
  - FOREIGN BODY [None]
